FAERS Safety Report 21313739 (Version 1)
Quarter: 2022Q3

REPORT INFORMATION
  Report Type: Other
  Country: US (occurrence: US)
  Receive Date: 20220909
  Receipt Date: 20220909
  Transmission Date: 20221027
  Serious: No
  Sender: FDA-Public Use
  Company Number: US-LEADIANT BIOSCIENCES INC-2021STPI000345

PATIENT
  Sex: Male

DRUGS (1)
  1. MATULANE [Suspect]
     Active Substance: PROCARBAZINE HYDROCHLORIDE
     Indication: Hodgkin^s disease
     Dosage: 50 MILLIGRAM, TAKE 3 CAPSULES (150 MG TOTAL), DAILY ON DAYS 8-21 OF EACH CHEMOTHERAPY CYCLE
     Route: 048
     Dates: start: 20210917

REACTIONS (2)
  - Irritability [Unknown]
  - Affective disorder [Unknown]
